FAERS Safety Report 9050275 (Version 1)
Quarter: 2013Q1

REPORT INFORMATION
  Report Type: Report from Study
  Country: US (occurrence: US)
  Receive Date: 20130205
  Receipt Date: 20130205
  Transmission Date: 20140127
  Serious: Yes (Hospitalization)
  Sender: FDA-Public Use
  Company Number: US-PFIZER INC-2013039005

PATIENT
  Age: 76 Year
  Sex: Male
  Weight: 90.7 kg

DRUGS (13)
  1. FLUOROURACIL [Suspect]
     Indication: OESOPHAGEAL CARCINOMA
     Dosage: 400 MG/M2, ON DAY 1 EVERY 14 DAYS
     Route: 040
     Dates: start: 20120125, end: 20130116
  2. FLUOROURACIL [Suspect]
     Dosage: 2400 MG/M2, CONTINUOUS IV FOR 46-48 HRS, ON DAY 1 EVERY 14 DAYS
     Route: 042
     Dates: start: 20120125, end: 20130116
  3. OXALIPLATIN [Suspect]
     Indication: OESOPHAGEAL CARCINOMA
     Dosage: 85 MG/M2, ON DAY 1 EVERY 14 DAYS
     Route: 042
     Dates: start: 20120125
  4. LEUCOVORIN [Suspect]
     Indication: OESOPHAGEAL CARCINOMA
     Dosage: 400 MG/M2, ON DAY 1 EVERY 14 DAYS
     Route: 042
     Dates: start: 20120125, end: 20130116
  5. BLINDED THERAPY [Suspect]
     Indication: OESOPHAGEAL CARCINOMA
     Dosage: EVERY 14 DAYS
     Route: 042
     Dates: start: 20120125, end: 20130116
  6. SIMVASTATIN [Concomitant]
     Dosage: UNK
     Dates: start: 1990
  7. PROCHLORPERAZINE MALEATE [Concomitant]
     Dosage: UNK
     Dates: start: 20120125
  8. METFORMIN HCL [Concomitant]
     Dosage: UNK
     Dates: start: 2011
  9. LISINOPRIL [Concomitant]
     Dosage: UNK
     Dates: start: 1988
  10. FINASTERIDE [Concomitant]
     Dosage: UNK
     Dates: start: 1993
  11. DOXAZOSIN MESILATE [Concomitant]
     Dosage: UNK
     Dates: start: 1993
  12. WARFARIN SODIUM [Concomitant]
     Dosage: UNK
     Dates: start: 2002
  13. FUROSEMIDE [Concomitant]
     Dosage: UNK
     Dates: start: 20120828

REACTIONS (1)
  - Dysphagia [Recovered/Resolved with Sequelae]
